FAERS Safety Report 21254551 (Version 1)
Quarter: 2022Q3

REPORT INFORMATION
  Report Type: Report from Study
  Country: CR (occurrence: CR)
  Receive Date: 20220825
  Receipt Date: 20220825
  Transmission Date: 20221027
  Serious: Yes (Hospitalization)
  Sender: FDA-Public Use
  Company Number: CR-NOVARTISPH-PHHY2017CR181921

PATIENT
  Age: 69 Year
  Sex: Female

DRUGS (1)
  1. HYDROCHLOROTHIAZIDE\VALSARTAN [Suspect]
     Active Substance: HYDROCHLOROTHIAZIDE\VALSARTAN
     Indication: Product used for unknown indication
     Dosage: 320/12.5 MG (APPROXIMATELY 6 MONTHS AGO)
     Route: 065

REACTIONS (2)
  - Angina unstable [Unknown]
  - Blood pressure increased [Unknown]
